FAERS Safety Report 9054075 (Version 1)
Quarter: 2013Q1

REPORT INFORMATION
  Report Type: Spontaneous
  Country: NL (occurrence: NL)
  Receive Date: 20130208
  Receipt Date: 20130208
  Transmission Date: 20140127
  Serious: Yes (Other)
  Sender: FDA-Public Use
  Company Number: NL-JNJFOC-20130201236

PATIENT
  Sex: 0

DRUGS (2)
  1. REMICADE [Suspect]
     Indication: COLITIS ULCERATIVE
     Dosage: FEW PATIENTS USED INFLIXIMAB ONCE EVERY 8 WEEKS AND OTHER ONCE EVERY 6 WEEKS
     Route: 042
  2. REMICADE [Suspect]
     Indication: CROHN^S DISEASE
     Dosage: FEW PATIENTS USED INFLIXIMAB ONCE EVERY 8 WEEKS AND OTHER ONCE EVERY 6 WEEKS
     Route: 042

REACTIONS (6)
  - Lung disorder [Unknown]
  - Immune system disorder [Unknown]
  - Drug ineffective [Unknown]
  - Condition aggravated [Unknown]
  - Hypersensitivity [Unknown]
  - Adverse drug reaction [Unknown]
